APPROVED DRUG PRODUCT: BACLOFEN
Active Ingredient: BACLOFEN
Strength: 20MG
Dosage Form/Route: TABLET;ORAL
Application: A077971 | Product #002
Applicant: IMPAX LABORATORIES LLC
Approved: Oct 26, 2007 | RLD: No | RS: No | Type: DISCN